FAERS Safety Report 6030397-0 (Version None)
Quarter: 2009Q1

REPORT INFORMATION
  Report Type: 
  Country: None (occurrence: None)
  Receive Date: 20090106
  Receipt Date: 20090106
  Transmission Date: 20090719
  Serious: Yes (Death)
  Sender: FDA-Public Use
  Company Number: None

PATIENT
  Age: 79 Year
  Sex: Female
  Weight: 98.4306 kg

DRUGS (2)
  1. CLOZARIL [Suspect]
     Indication: SCHIZOPHRENIA
     Dosage: 50 MG ONCE DAILY PO
     Route: 048
     Dates: start: 20080520, end: 20081222
  2. . [Concomitant]

REACTIONS (4)
  - ENTEROCOCCAL INFECTION [None]
  - IMMUNE SYSTEM DISORDER [None]
  - PNEUMONIA [None]
  - STAPHYLOCOCCAL INFECTION [None]
